FAERS Safety Report 25818617 (Version 1)
Quarter: 2025Q3

REPORT INFORMATION
  Report Type: Spontaneous
  Country: JP (occurrence: JP)
  Receive Date: 20250918
  Receipt Date: 20250918
  Transmission Date: 20251020
  Serious: Yes (Other)
  Sender: TAKEDA
  Company Number: JP-TAKEDA-2025TUS081698

PATIENT
  Age: 3 Decade
  Sex: Female

DRUGS (3)
  1. LIALDA [Suspect]
     Active Substance: MESALAMINE
     Indication: Colitis ulcerative
     Dates: start: 20200618, end: 20250807
  2. BUDESONIDE [Suspect]
     Active Substance: BUDESONIDE
     Indication: Colitis ulcerative
     Dosage: 1 DOSAGE FORM, QD
     Dates: start: 20250808
  3. MESALAMINE [Concomitant]
     Active Substance: MESALAMINE
     Indication: Colitis ulcerative
     Dosage: 4 GRAM, QD
     Dates: start: 201806, end: 20200829

REACTIONS (11)
  - Haematochezia [Unknown]
  - Colitis ulcerative [Unknown]
  - Physical deconditioning [Unknown]
  - Diarrhoea [Unknown]
  - Frequent bowel movements [Unknown]
  - Defaecation urgency [Unknown]
  - Drug intolerance [Unknown]
  - Abdominal pain [Unknown]
  - Pyrexia [Unknown]
  - White blood cell count increased [Unknown]
  - Reduced facial expression [Unknown]

NARRATIVE: CASE EVENT DATE: 20210619
